FAERS Safety Report 18301887 (Version 1)
Quarter: 2020Q3

REPORT INFORMATION
  Report Type: Spontaneous
  Country: CN (occurrence: CN)
  Receive Date: 20200923
  Receipt Date: 20200923
  Transmission Date: 20201103
  Serious: Yes (Other)
  Sender: FDA-Public Use
  Company Number: CN-GLAXOSMITHKLINE-CN2020APC185548

PATIENT
  Age: 43 Year
  Sex: Male
  Weight: 75 kg

DRUGS (4)
  1. ZINACEF [Suspect]
     Active Substance: CEFUROXIME SODIUM
     Indication: ANTI-INFECTIVE THERAPY
  2. SODIUM CHLORIDE SOLUTION FOR INJECTION [Suspect]
     Active Substance: SODIUM CHLORIDE
     Indication: ANTI-INFECTIVE THERAPY
     Dosage: 100 ML, QD
     Route: 042
     Dates: start: 20200830, end: 20200904
  3. ZINACEF [Suspect]
     Active Substance: CEFUROXIME SODIUM
     Indication: SKIN LACERATION
     Dosage: 1.5 G, QD
     Route: 042
     Dates: start: 20200830, end: 20200904
  4. STERILE WATER FOR INJECTION [Suspect]
     Active Substance: WATER
     Indication: ANTI-INFECTIVE THERAPY
     Dosage: 5 ML, QD
     Route: 042
     Dates: start: 20200830, end: 20200904

REACTIONS (2)
  - Hepatic enzyme increased [Recovering/Resolving]
  - Liver injury [Recovering/Resolving]

NARRATIVE: CASE EVENT DATE: 20200904
